FAERS Safety Report 5497977-2 (Version None)
Quarter: 2007Q4

REPORT INFORMATION
  Report Type: 
  Country: None (occurrence: None)
  Receive Date: 20071025
  Receipt Date: 20071019
  Transmission Date: 20080405
  Serious: Yes (Hospitalization, Other)
  Sender: FDA-Public Use
  Company Number: US-ASTRAZENECA-2007UW21087

PATIENT
  Age: 55 Year
  Sex: Female

DRUGS (30)
  1. CRESTOR [Suspect]
     Indication: HYPERLIPIDAEMIA
     Route: 048
     Dates: start: 20060322, end: 20060801
  2. NIACIN [Concomitant]
     Route: 048
  3. ESTRATEST [Concomitant]
  4. VIOXX [Concomitant]
  5. SYNTHROID [Concomitant]
  6. IMITREX [Concomitant]
     Dosage: 100 MG, PRN
  7. IBUPROFEN [Concomitant]
  8. PRILOSEC [Concomitant]
  9. ASPIRIN [Concomitant]
  10. DARVON 65 [Concomitant]
  11. PEPCID [Concomitant]
  12. KETOPROFEN [Concomitant]
  13. WELCHOL [Concomitant]
  14. BOSWALLA [Concomitant]
  15. MAXALT [Concomitant]
  16. LIDODERM [Concomitant]
  17. ULTRAM [Concomitant]
     Dosage: 50 MG EVERY 3 HRS, PRN
  18. SKELAXIN [Concomitant]
  19. NITROQUICK [Concomitant]
     Dosage: .4 MG PRN
  20. CALCIUM CITRATE W/VITAMIN D [Concomitant]
  21. COENZYME Q10 [Concomitant]
  22. OMEGA 3 [Concomitant]
  23. GARLIC [Concomitant]
  24. THIAMINE HCL [Concomitant]
  25. VITAMIN B-12 [Concomitant]
  26. VITAMIN B6 [Concomitant]
  27. ASCORBIC ACID [Concomitant]
  28. FOLIC ACID [Concomitant]
  29. MAGNESIUM SULFATE [Concomitant]
  30. NEURONTIN [Concomitant]

REACTIONS (16)
  - ANKLE FRACTURE [None]
  - ARTHRALGIA [None]
  - BEHCET'S SYNDROME [None]
  - CARPAL TUNNEL SYNDROME [None]
  - CHEST PAIN [None]
  - DEPRESSION [None]
  - DIARRHOEA [None]
  - FIBROMYALGIA [None]
  - HEADACHE [None]
  - INSOMNIA [None]
  - LEUKOPENIA [None]
  - MYALGIA [None]
  - OSTEOARTHRITIS [None]
  - PALLOR [None]
  - POLLAKIURIA [None]
  - RHEUMATOID ARTHRITIS [None]
